FAERS Safety Report 9717141 (Version 1)
Quarter: 2013Q4

REPORT INFORMATION
  Report Type: Spontaneous
  Country: US (occurrence: None)
  Receive Date: 20131125
  Receipt Date: 20131125
  Transmission Date: 20140711
  Serious: Yes (Other)
  Sender: FDA-Public Use
  Company Number: 2013-US-003401

PATIENT
  Age: 34 Year
  Sex: Male

DRUGS (1)
  1. XYREM [Suspect]
     Indication: NARCOLEPSY
     Route: 048
     Dates: start: 201210

REACTIONS (6)
  - Surgery [None]
  - Insomnia [None]
  - Feeling abnormal [None]
  - Anxiety [None]
  - Night sweats [None]
  - Somnolence [None]
